FAERS Safety Report 8487606 (Version 2)
Quarter: 2013Q1

REPORT INFORMATION
  Report Type: Spontaneous
  Country: US (occurrence: US)
  Receive Date: 20120402
  Receipt Date: 20130321
  Transmission Date: 20140127
  Serious: Yes (Other)
  Sender: FDA-Public Use
  Company Number: US-GLAXOSMITHKLINE-A0934202A

PATIENT
  Age: 52 Year
  Sex: Female

DRUGS (1)
  1. AVANDIA [Suspect]
     Indication: DIABETES MELLITUS
     Dosage: 4MG PER DAY
     Route: 048
     Dates: start: 200101, end: 2001

REACTIONS (6)
  - Cardiac failure congestive [Unknown]
  - Heart rate irregular [Unknown]
  - Chest pain [Unknown]
  - Pain in extremity [Unknown]
  - Pain in jaw [Unknown]
  - Cardiac operation [Unknown]
